FAERS Safety Report 6512197-8 (Version None)
Quarter: 2009Q4

REPORT INFORMATION
  Report Type: 
  Country: None (occurrence: None)
  Receive Date: 20091217
  Receipt Date: 20091201
  Transmission Date: 20100525
  Serious: Yes (Other)
  Sender: FDA-Public Use
  Company Number: 2009S1008732

PATIENT
  Sex: Male

DRUGS (1)
  1. PHOSPHOSODA FLAVOR NOT SPECIFIED [Suspect]
     Indication: COLONOSCOPY
     Dosage: ; X1; PO
     Route: 048
     Dates: start: 20030417, end: 20030417

REACTIONS (4)
  - HAEMODIALYSIS [None]
  - NEPHROCALCINOSIS [None]
  - NEPHROSCLEROSIS [None]
  - RENAL FAILURE ACUTE [None]
